FAERS Safety Report 12573730 (Version 21)
Quarter: 2020Q1

REPORT INFORMATION
  Report Type: Spontaneous
  Country: US (occurrence: US)
  Receive Date: 20160720
  Receipt Date: 20200127
  Transmission Date: 20200409
  Serious: Yes (Other)
  Sender: FDA-Public Use
  Company Number: US-PFIZER INC-2016344812

PATIENT
  Age: 73 Year
  Sex: Female
  Weight: 61 kg

DRUGS (20)
  1. PRESERVISION AREDS [Concomitant]
     Active Substance: MINERALS\VITAMINS
     Dosage: UNK
     Route: 048
  2. LISINOPRIL. [Concomitant]
     Active Substance: LISINOPRIL
     Indication: HYPERTENSION
     Dosage: 25 MG, 1X/DAY (IN MORNING)
  3. LYRICA [Suspect]
     Active Substance: PREGABALIN
     Indication: HERPES ZOSTER
     Dosage: 75 MG, 3X/DAY (1 CAPSULE IN MORNING, 2 CAPSULES AT NIGHT)
     Route: 048
     Dates: start: 201606, end: 2016
  4. LYRICA [Suspect]
     Active Substance: PREGABALIN
     Dosage: 225 MG, DAILY, (TAKE 1 CAPSULE DAILY AND 2 CAPSULE AT NIGHT)
     Route: 048
     Dates: start: 20160727, end: 2016
  5. PRINIVIL [Concomitant]
     Active Substance: LISINOPRIL
     Dosage: 20 MG, 1X/DAY
     Dates: start: 20160217
  6. LISINOPRIL. [Concomitant]
     Active Substance: LISINOPRIL
     Dosage: 25 MG, 1X/DAY (IN THE MORNING)
     Route: 048
     Dates: start: 200606, end: 2006
  7. LYRICA [Suspect]
     Active Substance: PREGABALIN
     Dosage: 225 MG, DAILY (1 CAPSULE IN THE MORNING AND 2 CAPSULES AT NIGHT)
     Route: 048
     Dates: start: 201904
  8. GYMNEMA SYLVESTRE/PECTIN [Concomitant]
     Indication: DIABETES MELLITUS
     Dosage: 500 MG, 2X/DAY (MORNING AND NIGHT)
  9. LYRICA [Suspect]
     Active Substance: PREGABALIN
     Indication: POST HERPETIC NEURALGIA
     Dosage: 225 MG, DAILY, (TAKE 1 CAPSULE DAILY AND 2 CAPSULES AT NIGHT)
     Route: 048
     Dates: start: 20160712, end: 201607
  10. ZESTRIL [Concomitant]
     Active Substance: LISINOPRIL
     Dosage: 20 MG, 1X/DAY
     Dates: start: 20160217
  11. GLUCOPHAGE [Concomitant]
     Active Substance: METFORMIN HYDROCHLORIDE
     Dosage: 500 MG, 2X/DAY (WITH MORNING AND EVENING MEALS)
     Dates: start: 20160217
  12. NEURONTIN [Concomitant]
     Active Substance: GABAPENTIN
     Dosage: 300 MG, 3X/DAY
     Route: 048
     Dates: start: 20160531
  13. ATIVAN [Concomitant]
     Active Substance: LORAZEPAM
     Dosage: 0.5 MG, UNK (1 HOUR PRIOR TO MRI, MAY REPEAT IN 30 MIN IF 1ST DOSE NOT EFFECTIVE)
     Route: 048
     Dates: start: 20160223
  14. ZANTAC [Concomitant]
     Active Substance: RANITIDINE HYDROCHLORIDE
     Dosage: 300 MG, UNK
     Route: 048
  15. LISINOPRIL. [Concomitant]
     Active Substance: LISINOPRIL
     Dosage: 20 MG, 1X/DAY (IN MORNING)
     Route: 048
     Dates: start: 200607
  16. CALCIUM 500+D [Concomitant]
     Active Substance: CALCIUM\VITAMIN D
     Indication: DIABETES MELLITUS
     Dosage: UNK
     Route: 048
  17. METFORMIN [Concomitant]
     Active Substance: METFORMIN HYDROCHLORIDE
     Indication: DIABETES MELLITUS
     Dosage: 500 MG, 2X/DAY (500MG IN THE MORNING AND AT NIGHT)
     Route: 048
     Dates: start: 200809
  18. LYRICA [Suspect]
     Active Substance: PREGABALIN
     Dosage: 225 MG, DAILY, (TAKE 1 CAPSULE DAILY AND 2 CAPSULE AT NIGHT)
     Route: 048
     Dates: start: 20160906, end: 20161216
  19. LYRICA [Suspect]
     Active Substance: PREGABALIN
     Dosage: 225 MG, DAILY (TAKE 1 CAPSULE DAILY AND 2 CAPSULE AT NIGHT)
     Route: 048
  20. LYRICA [Suspect]
     Active Substance: PREGABALIN
     Dosage: 75 MG, 1X/DAY
     Route: 048

REACTIONS (11)
  - Disease recurrence [Not Recovered/Not Resolved]
  - Feeling hot [Unknown]
  - Intentional product use issue [Unknown]
  - Headache [Unknown]
  - Intentional dose omission [Unknown]
  - Gait disturbance [Unknown]
  - Drug ineffective [Unknown]
  - Ophthalmic herpes zoster [Not Recovered/Not Resolved]
  - Dizziness [Unknown]
  - Weight increased [Unknown]
  - Joint dislocation [Not Recovered/Not Resolved]

NARRATIVE: CASE EVENT DATE: 201904
